FAERS Safety Report 15676811 (Version 3)
Quarter: 2024Q2

REPORT INFORMATION
  Report Type: Spontaneous
  Country: US (occurrence: US)
  Receive Date: 20181130
  Receipt Date: 20240415
  Transmission Date: 20240716
  Serious: No
  Sender: FDA-Public Use
  Company Number: US-PFIZER INC-2018485228

PATIENT
  Age: 8 Year
  Sex: Male
  Weight: 80.29 kg

DRUGS (1)
  1. SOMATROPIN [Suspect]
     Active Substance: SOMATROPIN
     Dosage: 0.8 MG, DAILY

REACTIONS (1)
  - Insulin-like growth factor increased [Unknown]

NARRATIVE: CASE EVENT DATE: 20180507
